FAERS Safety Report 10867874 (Version 1)
Quarter: 2015Q1

REPORT INFORMATION
  Report Type: Spontaneous
  Country: DE (occurrence: DE)
  Receive Date: 20150225
  Receipt Date: 20150225
  Transmission Date: 20150721
  Serious: Yes (Other)
  Sender: FDA-Public Use
  Company Number: DE-TEVA-487369GER

PATIENT
  Age: 3 Decade
  Sex: Female

DRUGS (1)
  1. COPAXONE [Suspect]
     Active Substance: GLATIRAMER ACETATE

REACTIONS (11)
  - Asthenia [Unknown]
  - Hemiplegia [Unknown]
  - Musculoskeletal stiffness [Recovering/Resolving]
  - Headache [Recovering/Resolving]
  - Multiple sclerosis relapse [Unknown]
  - Optic neuritis [Unknown]
  - Gait disturbance [Unknown]
  - Muscle spasms [Recovering/Resolving]
  - Hypoaesthesia [Unknown]
  - Neck pain [Recovering/Resolving]
  - Nuchal rigidity [Recovering/Resolving]

NARRATIVE: CASE EVENT DATE: 2014
